FAERS Safety Report 6891765-8 (Version None)
Quarter: 2010Q3

REPORT INFORMATION
  Report Type: 
  Country: None (occurrence: None)
  Receive Date: 20100731
  Receipt Date: 20071213
  Transmission Date: 20110219
  Serious: Yes (Other)
  Sender: FDA-Public Use
  Company Number: US-PFIZER INC-2007081357

PATIENT
  Sex: Female
  Weight: 13.2 kg

DRUGS (2)
  1. NEURONTIN [Suspect]
     Indication: MYELITIS TRANSVERSE
     Dates: start: 20061201
  2. DRUG, UNSPECIFIED [Concomitant]

REACTIONS (2)
  - ENURESIS [None]
  - HEPATIC ENZYME INCREASED [None]
